FAERS Safety Report 18233586 (Version 1)
Quarter: 2020Q3

REPORT INFORMATION
  Report Type: Spontaneous
  Country: CA (occurrence: CA)
  Receive Date: 20200904
  Receipt Date: 20200904
  Transmission Date: 20201103
  Serious: Yes (Hospitalization)
  Sender: FDA-Public Use
  Company Number: CA-TEVA-2020-CA-1823047

PATIENT
  Age: 81 Year
  Sex: Male

DRUGS (1)
  1. OXALIPLATIN. [Suspect]
     Active Substance: OXALIPLATIN
     Indication: COLORECTAL CANCER
     Route: 042

REACTIONS (7)
  - Diarrhoea [Unknown]
  - Pallor [Unknown]
  - Asthenia [Unknown]
  - Cyanosis [Unknown]
  - Tenderness [Unknown]
  - Pain in extremity [Unknown]
  - Chills [Unknown]
